FAERS Safety Report 6509350-6 (Version None)
Quarter: 2009Q4

REPORT INFORMATION
  Report Type: 
  Country: None (occurrence: None)
  Receive Date: 20091218
  Receipt Date: 20091218
  Transmission Date: 20100525
  Serious: Yes (Life-Threatening, Other)
  Sender: FDA-Public Use
  Company Number: None

PATIENT
  Age: 60 Year
  Sex: Female
  Weight: 67.3 kg

DRUGS (1)
  1. TACROLIMUS STUDY MEDICATION (VEHICLE) 0.1% TARO PHARMACEUTICALS [Suspect]
     Indication: DERMATITIS ATOPIC
     Dosage: TWICE DAILY TOPICAL
     Route: 061
     Dates: start: 20090522, end: 20090605

REACTIONS (3)
  - ANAPLASTIC LARGE CELL LYMPHOMA T- AND NULL-CELL TYPES [None]
  - IMPAIRED HEALING [None]
  - SKIN ULCER [None]
